FAERS Safety Report 10047614 (Version 1)
Quarter: 2014Q1

REPORT INFORMATION
  Report Type: Spontaneous
  Country: US (occurrence: None)
  Receive Date: 20140328
  Receipt Date: 20140328
  Transmission Date: 20141002
  Serious: Yes (Other)
  Sender: FDA-Public Use
  Company Number: None

PATIENT
  Age: 20 Year
  Sex: Male
  Weight: 68.04 kg

DRUGS (3)
  1. ACETAMINOPHEN [Concomitant]
  2. ONDANSETRON ODT [Suspect]
     Indication: NAUSEA
     Route: 048
     Dates: start: 20140317
  3. RANITIDINE [Concomitant]

REACTIONS (3)
  - Chest discomfort [None]
  - Oesophagitis [None]
  - Electrocardiogram QT prolonged [None]
